FAERS Safety Report 9524213 (Version 3)
Quarter: 2014Q2

REPORT INFORMATION
  Report Type: Spontaneous
  Country: US (occurrence: US)
  Receive Date: 20130916
  Receipt Date: 20140402
  Transmission Date: 20141212
  Serious: Yes (Other)
  Sender: FDA-Public Use
  Company Number: US-AMGEN-USASP2013063761

PATIENT
  Age: 83 Year
  Sex: Female
  Weight: 53.52 kg

DRUGS (8)
  1. PROLIA [Suspect]
     Indication: OSTEOPOROSIS POSTMENOPAUSAL
     Dosage: 60 MG, Q6MO
     Route: 058
     Dates: start: 20110811, end: 20130903
  2. LIPITOR [Concomitant]
     Dosage: 10, QD (QPM)
     Dates: start: 200510
  3. ASA [Concomitant]
     Dosage: 325, HALF TABLET QD (QPM)
  4. CALCIUM/VITAMIN D                  /01204201/ [Concomitant]
     Dosage: 600/200, 2/D
  5. BENICAR HCT [Concomitant]
     Dosage: 40/25, QD (QSUN)
     Route: 048
     Dates: start: 200512
  6. VAGIFEM [Concomitant]
     Dosage: BIW
  7. VITAMIN D3 [Concomitant]
     Dosage: 1.25 MG (50 KU), QMO
     Route: 048
     Dates: start: 200710
  8. METHENAMINE MANDELATE [Concomitant]
     Dosage: 1 G, BID

REACTIONS (4)
  - Osteonecrosis of jaw [Not Recovered/Not Resolved]
  - Type IIa hyperlipidaemia [Unknown]
  - Hypertension [Unknown]
  - Hyperparathyroidism secondary [Unknown]
